FAERS Safety Report 12086873 (Version 1)
Quarter: 2016Q1

REPORT INFORMATION
  Report Type: Spontaneous
  Country: US (occurrence: US)
  Receive Date: 20160217
  Receipt Date: 20160217
  Transmission Date: 20160526
  Serious: No
  Sender: FDA-Public Use
  Company Number: US-ALLERGAN-1509009US

PATIENT
  Sex: Male
  Weight: 122.45 kg

DRUGS (4)
  1. RESTASIS [Suspect]
     Active Substance: CYCLOSPORINE
     Indication: EYE DISCHARGE
  2. ASACOL [Concomitant]
     Active Substance: MESALAMINE
     Indication: CROHN^S DISEASE
     Dosage: 800 MG, QD
  3. RESTASIS [Suspect]
     Active Substance: CYCLOSPORINE
     Indication: EYE INFLAMMATION
  4. RESTASIS [Suspect]
     Active Substance: CYCLOSPORINE
     Indication: LACRIMATION DECREASED
     Dosage: 2 GTT, BID
     Route: 047

REACTIONS (3)
  - Off label use [Unknown]
  - Vision blurred [Not Recovered/Not Resolved]
  - Burning sensation [Not Recovered/Not Resolved]
